FAERS Safety Report 17467107 (Version 1)
Quarter: 2020Q1

REPORT INFORMATION
  Report Type: Spontaneous
  Country: US (occurrence: US)
  Receive Date: 20200227
  Receipt Date: 20200227
  Transmission Date: 20200409
  Serious: No
  Sender: FDA-Public Use
  Company Number: US-TEVA-2020-US-1189468

PATIENT
  Sex: Female

DRUGS (2)
  1. CREON [Concomitant]
     Active Substance: PANCRELIPASE AMYLASE\PANCRELIPASE LIPASE\PANCRELIPASE PROTEASE
     Indication: PANCREATIC FAILURE
     Route: 065
  2. AZITHROMYCIN ANHYDROUS. [Suspect]
     Active Substance: AZITHROMYCIN ANHYDROUS
     Indication: SINUSITIS
     Route: 065

REACTIONS (2)
  - Diarrhoea [Not Recovered/Not Resolved]
  - Wrong technique in product usage process [Unknown]

NARRATIVE: CASE EVENT DATE: 20200217
